FAERS Safety Report 7295154-6 (Version None)
Quarter: 2011Q1

REPORT INFORMATION
  Report Type: 
  Country: None (occurrence: None)
  Receive Date: 20110216
  Receipt Date: 20110208
  Transmission Date: 20110831
  Serious: Yes (Hospitalization, Other)
  Sender: FDA-Public Use
  Company Number: DK-JNJFOC-JRFBEL2000002718

PATIENT
  Age: 76 Year
  Sex: Female

DRUGS (6)
  1. MICONAZOLE NITRATE [Suspect]
     Route: 048
  2. MAGNESIUM OXIDE [Concomitant]
     Route: 065
  3. MICONAZOLE NITRATE [Suspect]
     Indication: ORAL CANDIDIASIS
     Route: 048
  4. WARFARIN SODIUM [Interacting]
     Indication: DEEP VEIN THROMBOSIS
     Route: 065
  5. ACETAMINOPHEN [Concomitant]
     Route: 065
  6. WARFARIN SODIUM [Interacting]
     Route: 065

REACTIONS (7)
  - HAEMOGLOBIN DECREASED [None]
  - HAEMATURIA [None]
  - GINGIVAL BLEEDING [None]
  - PROTHROMBIN TIME PROLONGED [None]
  - DRUG INTERACTION [None]
  - EPISTAXIS [None]
  - WHITE BLOOD CELL COUNT INCREASED [None]
